FAERS Safety Report 16990952 (Version 1)
Quarter: 2019Q4

REPORT INFORMATION
  Report Type: Spontaneous
  Country: US (occurrence: US)
  Receive Date: 20191104
  Receipt Date: 20191104
  Transmission Date: 20200122
  Serious: No
  Sender: FDA-Public Use
  Company Number: US-SA-2019SA302114

PATIENT
  Age: 59 Year
  Sex: Female
  Weight: 58.96 kg

DRUGS (1)
  1. ZANTAC 75 [Suspect]
     Active Substance: RANITIDINE HYDROCHLORIDE
     Indication: GASTROOESOPHAGEAL REFLUX DISEASE
     Dosage: 75 MG, QD (DOSE 75 MG BEFORE DINNER)

REACTIONS (3)
  - Rash [Unknown]
  - Abdominal pain [Unknown]
  - Cystitis [Unknown]
